FAERS Safety Report 9523342 (Version 1)
Quarter: 2013Q3

REPORT INFORMATION
  Report Type: Report from Study
  Country: MX (occurrence: MX)
  Receive Date: 20130913
  Receipt Date: 20130913
  Transmission Date: 20140515
  Serious: Yes (Other)
  Sender: FDA-Public Use
  Company Number: PHHY2013MX100467

PATIENT
  Age: 68 Year
  Sex: Female

DRUGS (9)
  1. ACLASTA [Suspect]
     Indication: OSTEOPOROSIS
     Dosage: 5 MG/100ML,ANNUALLY
     Route: 042
     Dates: start: 2009
  2. ATENOLOL [Concomitant]
     Indication: HYPERTENSION
     Dosage: 1 UKN, UNK
  3. ALPRAZOLAM [Concomitant]
     Indication: SLEEP DISORDER
     Dosage: 0.5 UKN, UNK
  4. ALEVIAN DUO                        /06593801/ [Concomitant]
     Indication: INFLAMMATORY BOWEL DISEASE
     Dosage: 2 UKN, UNK
  5. ALEVIAN DUO                        /06593801/ [Concomitant]
     Dosage: 1 UKN, QD
     Dates: start: 201306
  6. DEXIVANT [Concomitant]
     Indication: GASTRIC DISORDER
     Dosage: 1 UKN, QD
  7. LEVOFLOXACIN [Concomitant]
     Indication: ANTIBIOTIC THERAPY
     Dosage: 1 UKN, QD
     Dates: start: 201306, end: 201306
  8. TENORETIC [Concomitant]
     Indication: HYPERTENSION
     Dosage: 1 UKN, QD
     Dates: start: 1985
  9. TAFIL [Concomitant]
     Indication: SLEEP DISORDER
     Dosage: 0.5 UKN, QD
     Dates: start: 2009

REACTIONS (6)
  - Urinary tract infection [Recovered/Resolved]
  - Gastrointestinal infection [Recovered/Resolved]
  - Tooth infection [Recovered/Resolved]
  - Sleep disorder [Unknown]
  - Arthralgia [Recovered/Resolved]
  - Pain [Unknown]
